FAERS Safety Report 14694091 (Version 1)
Quarter: 2018Q1

REPORT INFORMATION
  Report Type: Spontaneous
  Country: US (occurrence: US)
  Receive Date: 20180327
  Receipt Date: 20180327
  Transmission Date: 20180509
  Serious: Yes (Death)
  Sender: FDA-Public Use
  Company Number: None

PATIENT
  Age: 63 Year
  Sex: Male

DRUGS (12)
  1. TEMOZOLOMIDE 100MG [Suspect]
     Active Substance: TEMOZOLOMIDE
     Indication: DRUG THERAPY
     Dosage: DAILY FOR 5 DAYS
     Route: 048
     Dates: start: 20180302
  2. ACETAMIN [Concomitant]
     Active Substance: ACETAMINOPHEN
  3. ACYCLOVIR. [Concomitant]
     Active Substance: ACYCLOVIR
  4. LORAZEPAM. [Concomitant]
     Active Substance: LORAZEPAM
  5. FENTANYL. [Concomitant]
     Active Substance: FENTANYL
  6. METHADONE [Concomitant]
     Active Substance: METHADONE HYDROCHLORIDE
  7. TEMOZOLOMIDE 5MG [Suspect]
     Active Substance: TEMOZOLOMIDE
     Indication: DRUG THERAPY
     Dosage: DAILY FOR 5 DAYS
     Route: 048
     Dates: start: 20180302
  8. ATROPINE. [Concomitant]
     Active Substance: ATROPINE
  9. GABAPENTIN. [Concomitant]
     Active Substance: GABAPENTIN
  10. METANX [Concomitant]
     Active Substance: LEVOMEFOLATE CALCIUM\METHYLCOBALAMIN\PYRIDOXAL PHOSPHATE ANHYDROUS
  11. SENNA [Concomitant]
     Active Substance: SENNA LEAF\SENNOSIDES\SENNOSIDES A AND B
  12. IPRATROPIUM [Concomitant]
     Active Substance: IPRATROPIUM

REACTIONS (1)
  - Death [None]

NARRATIVE: CASE EVENT DATE: 20180320
